FAERS Safety Report 18151073 (Version 2)
Quarter: 2020Q3

REPORT INFORMATION
  Report Type: Spontaneous
  Country: US (occurrence: US)
  Receive Date: 20200814
  Receipt Date: 20200908
  Transmission Date: 20201103
  Serious: No
  Sender: FDA-Public Use
  Company Number: US-PFIZER INC-2020275356

PATIENT
  Age: 81 Year
  Sex: Female
  Weight: 68.95 kg

DRUGS (5)
  1. CHANTIX [Suspect]
     Active Substance: VARENICLINE TARTRATE
     Dosage: 1 MG, 2X/DAY, (1MG TABLET, 1 TABLET TWICE A DAY BY MOUTH)
     Route: 048
     Dates: start: 2018, end: 2018
  2. CHANTIX [Suspect]
     Active Substance: VARENICLINE TARTRATE
     Indication: SMOKING CESSATION THERAPY
     Dosage: UNK (START PACK PER DIRECTIONS FOR FIRST 3 WEEKS)
     Dates: start: 2018
  3. PROPRANOLOL [Concomitant]
     Active Substance: PROPRANOLOL HYDROCHLORIDE
     Indication: TREMOR
     Dosage: 80 MG, 2X/DAY (80 MG TABLET, 1 TABLET TWICE DAILY BY MOUTH)
     Route: 048
  4. CHANTIX [Suspect]
     Active Substance: VARENICLINE TARTRATE
     Dosage: UNK
  5. OMEPRAZOLE. [Concomitant]
     Active Substance: OMEPRAZOLE
     Indication: GASTROOESOPHAGEAL REFLUX DISEASE
     Dosage: 20 MG, 2X/DAY (20 MG CAPSULE, 1 CAPSULE TWICE A DAY BY MOUTH)
     Route: 048

REACTIONS (4)
  - Body height decreased [Unknown]
  - Visual impairment [Unknown]
  - Drug ineffective [Unknown]
  - Tremor [Unknown]

NARRATIVE: CASE EVENT DATE: 2018
